FAERS Safety Report 8229440-X (Version None)
Quarter: 2012Q1

REPORT INFORMATION
  Report Type: 
  Country: None (occurrence: None)
  Receive Date: 20120322
  Receipt Date: 20120308
  Transmission Date: 20120608
  Serious: Yes (Other)
  Sender: FDA-Public Use
  Company Number: US-ROCHE-1048092

PATIENT
  Sex: Female

DRUGS (2)
  1. FORTEO [Concomitant]
  2. BONIVA [Suspect]
     Indication: OSTEOPOROSIS

REACTIONS (10)
  - TREMOR [None]
  - EXPLORATORY OPERATION [None]
  - DIZZINESS [None]
  - BONE DISORDER [None]
  - LUNG DISORDER [None]
  - MUSCULAR WEAKNESS [None]
  - DYSPNOEA [None]
  - MACULAR DEGENERATION [None]
  - NERVOUSNESS [None]
  - POOR PERIPHERAL CIRCULATION [None]
